FAERS Safety Report 20507309 (Version 1)
Quarter: 2022Q1

REPORT INFORMATION
  Report Type: Spontaneous
  Country: US (occurrence: US)
  Receive Date: 20220223
  Receipt Date: 20220223
  Transmission Date: 20220423
  Serious: No
  Sender: FDA-Public Use
  Company Number: US-BRACCO-2021US04728

PATIENT
  Age: 62 Year
  Sex: Male

DRUGS (4)
  1. ISOVUE 300 [Suspect]
     Active Substance: IOPAMIDOL
     Indication: Computerised tomogram
     Dosage: 100 ML, SINGLE
     Route: 042
     Dates: start: 20211101, end: 20211101
  2. PREDNISONE [Concomitant]
     Active Substance: PREDNISONE
     Indication: Premedication
     Dosage: 50 MG
     Dates: start: 20211031, end: 20211031
  3. PREDNISONE [Concomitant]
     Active Substance: PREDNISONE
     Indication: Premedication
     Dosage: 50 MG
     Dates: start: 20211101, end: 20211101
  4. PREDNISONE [Concomitant]
     Active Substance: PREDNISONE
     Indication: Premedication
     Dosage: 50 MG
     Dates: start: 20211101, end: 20211101

REACTIONS (2)
  - Contraindicated product administered [Recovered/Resolved]
  - Urticaria [Recovered/Resolved]

NARRATIVE: CASE EVENT DATE: 20211101
